FAERS Safety Report 22211339 (Version 1)
Quarter: 2023Q2

REPORT INFORMATION
  Report Type: Spontaneous
  Country: US (occurrence: None)
  Receive Date: 20230413
  Receipt Date: 20230413
  Transmission Date: 20230721
  Serious: No
  Sender: FDA-Public Use
  Company Number: None

PATIENT
  Age: 39 Year
  Sex: Female

DRUGS (2)
  1. BUPROPION [Suspect]
     Active Substance: BUPROPION
     Indication: Major depression
  2. BUPROPION [Suspect]
     Active Substance: BUPROPION
     Indication: Major depression

REACTIONS (2)
  - Headache [None]
  - Therapy change [None]

NARRATIVE: CASE EVENT DATE: 20230412
